FAERS Safety Report 7674074-9 (Version None)
Quarter: 2011Q3

REPORT INFORMATION
  Report Type: 
  Country: None (occurrence: None)
  Receive Date: 20110810
  Receipt Date: 20110803
  Transmission Date: 20111222
  Serious: Yes (Hospitalization)
  Sender: FDA-Public Use
  Company Number: JP-SHIRE-ALL1-2011-02651

PATIENT
  Age: 64 Year
  Sex: Female

DRUGS (2)
  1. FOSRENOL [Suspect]
     Indication: HYPERPHOSPHATAEMIA
     Dosage: 1000 MG, 1X/DAY:QD
     Route: 048
     Dates: start: 20090605
  2. FOSRENOL [Suspect]
     Dosage: 750 MG, 1X/DAY:QD
     Route: 048
     Dates: end: 20090604

REACTIONS (1)
  - OSTEOARTHRITIS [None]
